FAERS Safety Report 7892517-2 (Version None)
Quarter: 2011Q4

REPORT INFORMATION
  Report Type: 
  Country: None (occurrence: None)
  Receive Date: 20111104
  Receipt Date: 20111025
  Transmission Date: 20120403
  Serious: Yes (Hospitalization)
  Sender: FDA-Public Use
  Company Number: US-BAYER-2010-009254

PATIENT
  Age: 25 Year
  Sex: Female
  Weight: 72.562 kg

DRUGS (3)
  1. LEXAPRO [Concomitant]
     Indication: DEPRESSION
     Dosage: UNK
  2. ALLEGRA [Concomitant]
     Indication: SEASONAL ALLERGY
     Dosage: UNK
     Route: 048
  3. YAZ [Suspect]
     Indication: CONTRACEPTION
     Dosage: UNK
     Route: 048
     Dates: start: 20050101, end: 20070101

REACTIONS (6)
  - BILIARY COLIC [None]
  - PAIN [None]
  - NAUSEA [None]
  - DIZZINESS [None]
  - GALLBLADDER NON-FUNCTIONING [None]
  - INJURY [None]
